FAERS Safety Report 21353518 (Version 3)
Quarter: 2022Q4

REPORT INFORMATION
  Report Type: Spontaneous
  Country: CN (occurrence: CN)
  Receive Date: 20220920
  Receipt Date: 20221003
  Transmission Date: 20230112
  Serious: Yes (Death, Other)
  Sender: FDA-Public Use
  Company Number: CN-SA-SAC20220915002107

PATIENT
  Age: 18 Year
  Sex: Male

DRUGS (1)
  1. CEREZYME [Suspect]
     Active Substance: IMIGLUCERASE
     Indication: Gaucher^s disease type III
     Dosage: 37 UNITS; 10 VIALS/ MONTH
     Route: 041
     Dates: start: 2005, end: 202208

REACTIONS (4)
  - Epilepsy [Fatal]
  - Seizure [Fatal]
  - Dyspnoea [Fatal]
  - Asphyxia [Fatal]

NARRATIVE: CASE EVENT DATE: 20220801
